FAERS Safety Report 4602889-X (Version None)
Quarter: 2005Q1

REPORT INFORMATION
  Report Type: 
  Country: None (occurrence: None)
  Receive Date: 20050309
  Receipt Date: 20050222
  Transmission Date: 20050727
  Serious: Yes (Other)
  Sender: FDA-Public Use
  Company Number: JP-GLAXOSMITHKLINE-B0373172A

PATIENT
  Age: 78 Year
  Sex: Male

DRUGS (3)
  1. PAXIL [Suspect]
     Indication: DEPRESSION
     Dosage: 10MG PER DAY
     Route: 048
  2. CARBAMAZEPINE [Concomitant]
     Route: 048
  3. IRRADIATION [Concomitant]
     Indication: NEURALGIA

REACTIONS (3)
  - CEREBRAL ATROPHY [None]
  - MANIA [None]
  - RESTLESSNESS [None]
